FAERS Safety Report 23758785 (Version 1)
Quarter: 2024Q2

REPORT INFORMATION
  Report Type: Other
  Country: US (occurrence: None)
  Receive Date: 20240418
  Receipt Date: 20240418
  Transmission Date: 20240716
  Serious: No
  Sender: FDA-Public Use
  Company Number: US-ROCHE-3394303

PATIENT
  Age: 54 Year
  Sex: Female

DRUGS (8)
  1. BEVACIZUMAB [Suspect]
     Active Substance: BEVACIZUMAB
     Indication: Lung adenocarcinoma
     Route: 065
  2. BEVACIZUMAB [Suspect]
     Active Substance: BEVACIZUMAB
     Indication: Metastases to central nervous system
  3. PEMETREXED [Suspect]
     Active Substance: PEMETREXED
     Indication: Lung adenocarcinoma
     Route: 065
  4. PEMETREXED [Suspect]
     Active Substance: PEMETREXED
     Indication: Metastases to central nervous system
  5. PEMBROLIZUMAB [Concomitant]
     Active Substance: PEMBROLIZUMAB
  6. DEXAMETHASONE [Concomitant]
     Active Substance: DEXAMETHASONE
  7. CEPHALEXIN [Concomitant]
     Active Substance: CEPHALEXIN
     Indication: Cellulitis
  8. FOLATE SODIUM [Concomitant]
     Active Substance: FOLATE SODIUM

REACTIONS (4)
  - Face oedema [Recovering/Resolving]
  - Oedema peripheral [Recovering/Resolving]
  - Periorbital oedema [Recovering/Resolving]
  - Erythema [Recovering/Resolving]
